FAERS Safety Report 25194167 (Version 4)
Quarter: 2025Q4

REPORT INFORMATION
  Report Type: Report from Study
  Country: KR (occurrence: KR)
  Receive Date: 20250414
  Receipt Date: 20251129
  Transmission Date: 20260118
  Serious: Yes (Hospitalization, Other)
  Sender: ABBVIE
  Company Number: KR-ABBVIE-6155347

PATIENT
  Age: 70 Year
  Sex: Male
  Weight: 55 kg

DRUGS (48)
  1. VENCLEXTA [Suspect]
     Active Substance: VENETOCLAX
     Indication: Acute myeloid leukaemia
     Route: 048
     Dates: start: 20250210, end: 20250225
  2. VENCLEXTA [Suspect]
     Active Substance: VENETOCLAX
     Indication: Acute myeloid leukaemia
     Route: 048
     Dates: start: 20241120, end: 20241218
  3. VENCLEXTA [Suspect]
     Active Substance: VENETOCLAX
     Indication: Acute myeloid leukaemia
     Route: 048
     Dates: start: 20241230, end: 20250126
  4. VENCLEXTA [Suspect]
     Active Substance: VENETOCLAX
     Indication: Acute myeloid leukaemia
     Route: 048
     Dates: start: 20250305, end: 20250306
  5. COUGH SYRUP [Concomitant]
     Active Substance: DEXTROMETHORPHAN HYDROBROMIDE\GUAIFENESIN
     Indication: Upper respiratory tract infection
     Dosage: TIME INTERVAL: 0.33333333 DAYS
     Route: 048
     Dates: start: 20241223
  6. RAMOSETRON HYDROCHLORIDE [Concomitant]
     Active Substance: RAMOSETRON HYDROCHLORIDE
     Indication: Nausea
     Route: 042
     Dates: start: 20250331, end: 20250401
  7. Levoplus [Concomitant]
     Indication: Infection prophylaxis
     Route: 048
     Dates: start: 20241120
  8. Dulackhan [Concomitant]
     Indication: Constipation
     Dosage: TIME INTERVAL: 0.33333333 DAYS
     Route: 048
     Dates: start: 20250110, end: 20250120
  9. Dulackhan [Concomitant]
     Indication: Constipation
     Route: 048
     Dates: start: 20250228, end: 20250303
  10. Dulackhan [Concomitant]
     Indication: Constipation
     Route: 048
     Dates: start: 20241223, end: 20250109
  11. Dulackhan easy [Concomitant]
     Indication: Constipation
     Route: 048
     Dates: start: 20241122, end: 20241204
  12. Dulackhan easy [Concomitant]
     Indication: Constipation
     Dosage: TIME INTERVAL: 0.33333333 DAYS
     Route: 048
     Dates: start: 20250110, end: 20250120
  13. Dulackhan easy [Concomitant]
     Indication: Constipation
     Route: 048
     Dates: start: 20250318, end: 20250323
  14. Dulackhan easy [Concomitant]
     Indication: Constipation
     Dosage: TIME INTERVAL: 0.33333333 DAYS
     Route: 048
     Dates: start: 20250110, end: 20250120
  15. REBAMIPIDE [Concomitant]
     Active Substance: REBAMIPIDE
     Indication: Abdominal pain upper
     Dosage: TIME INTERVAL: 0.33333333 DAYS
     Route: 048
     Dates: start: 20250118
  16. DIFLUCAN [Concomitant]
     Active Substance: FLUCONAZOLE
     Indication: Antifungal prophylaxis
     Route: 048
     Dates: start: 20250210, end: 20250323
  17. DIFLUCAN [Concomitant]
     Active Substance: FLUCONAZOLE
     Indication: Antifungal prophylaxis
     Route: 048
     Dates: start: 20241223, end: 20241229
  18. VIDAZA [Concomitant]
     Active Substance: AZACITIDINE
     Indication: Acute myeloid leukaemia
     Dosage: VIDAZA INJ 100MG
     Route: 042
     Dates: start: 20241120, end: 20241126
  19. VIDAZA [Concomitant]
     Active Substance: AZACITIDINE
     Indication: Acute myeloid leukaemia
     Route: 042
     Dates: start: 20250210, end: 20250216
  20. VIDAZA [Concomitant]
     Active Substance: AZACITIDINE
     Indication: Acute myeloid leukaemia
     Route: 042
     Dates: start: 20241230, end: 20250105
  21. LASIX [Concomitant]
     Active Substance: FUROSEMIDE
     Indication: Prophylaxis
     Route: 042
     Dates: start: 20250228
  22. LASIX [Concomitant]
     Active Substance: FUROSEMIDE
     Indication: Prophylaxis
     Route: 042
     Dates: start: 20250319
  23. NOXAFIL [Concomitant]
     Active Substance: POSACONAZOLE
     Indication: Antifungal prophylaxis
     Dosage: GASTRO RESISTANT TAB 100MG
     Route: 048
     Dates: start: 20241122, end: 20250210
  24. NOXAFIL [Concomitant]
     Active Substance: POSACONAZOLE
     Indication: Antifungal prophylaxis
     Dosage: GASTRO RESISTANT TAB 100MG
     Route: 048
     Dates: start: 20241121, end: 20241121
  25. Dong a gaster [Concomitant]
     Indication: Gastrooesophageal reflux disease
     Route: 048
     Dates: start: 20241120, end: 20241204
  26. Aloxif [Concomitant]
     Indication: Prophylaxis of nausea and vomiting
     Dosage: 5ML
     Route: 042
     Dates: start: 20241120, end: 20241126
  27. Aloxif [Concomitant]
     Indication: Prophylaxis of nausea and vomiting
     Route: 042
     Dates: start: 20241230
  28. Mypol [Concomitant]
     Indication: Pain prophylaxis
     Route: 048
     Dates: start: 20241230
  29. BANAN [Concomitant]
     Active Substance: CEFPODOXIME PROXETIL
     Indication: Infection prophylaxis
     Route: 048
     Dates: start: 20250319, end: 20250323
  30. Phazyme complex [Concomitant]
     Indication: Abdominal pain upper
     Dosage: TIME INTERVAL: 0.33333333 DAYS
     Route: 048
     Dates: start: 20250221
  31. Peniramin [Concomitant]
     Indication: Prophylaxis
     Route: 042
     Dates: start: 20250218, end: 20250218
  32. Peniramin [Concomitant]
     Indication: Prophylaxis
     Route: 042
     Dates: start: 20250226, end: 20250226
  33. Peniramin [Concomitant]
     Indication: Prophylaxis
     Route: 042
     Dates: start: 20250228, end: 20250228
  34. TAGAMET [Concomitant]
     Active Substance: CIMETIDINE
     Indication: Abdominal pain upper
     Dosage: 200MG/2ML
     Route: 042
     Dates: start: 20250118, end: 20250118
  35. MONTMORILLONITE [Concomitant]
     Active Substance: MONTMORILLONITE
     Indication: Diarrhoea
     Route: 048
     Dates: start: 20250227, end: 20250227
  36. Esomezol [Concomitant]
     Indication: Abdominal pain upper
     Route: 048
     Dates: start: 20241223, end: 20250324
  37. MAGNESIUM HYDROXIDE [Concomitant]
     Active Substance: MAGNESIUM HYDROXIDE
     Indication: Constipation
     Dosage: TIME INTERVAL: 0.33333333 DAYS: DOSE 1000 MG
     Route: 048
     Dates: start: 20250110, end: 20250310
  38. MAGNESIUM HYDROXIDE [Concomitant]
     Active Substance: MAGNESIUM HYDROXIDE
     Indication: Constipation
     Dosage: DOSE 1000 MG
     Route: 048
     Dates: start: 20241223, end: 20250109
  39. MAGNESIUM HYDROXIDE [Concomitant]
     Active Substance: MAGNESIUM HYDROXIDE
     Indication: Constipation
     Dosage: TIME INTERVAL: 0.33333333 DAYS: 500 MG
     Route: 048
     Dates: start: 20241204, end: 20241222
  40. MAGNESIUM HYDROXIDE [Concomitant]
     Active Substance: MAGNESIUM HYDROXIDE
     Indication: Constipation
     Dosage: MAGMIL TAB 500MG/ DOSE 1000 MG
     Route: 048
     Dates: start: 20241121, end: 20241124
  41. PANTOPRAZOLE SODIUM [Concomitant]
     Active Substance: PANTOPRAZOLE SODIUM
     Indication: Gastritis prophylaxis
     Route: 042
     Dates: start: 20250313, end: 20250313
  42. ALOXI [Concomitant]
     Active Substance: PALONOSETRON HYDROCHLORIDE
     Indication: Prophylaxis of nausea and vomiting
     Route: 042
     Dates: start: 20241230, end: 20250216
  43. ALOXI [Concomitant]
     Active Substance: PALONOSETRON HYDROCHLORIDE
     Indication: Prophylaxis of nausea and vomiting
     Route: 042
     Dates: start: 20241120, end: 20241126
  44. FURIX [Concomitant]
     Indication: Prophylaxis
     Route: 048
     Dates: start: 20250405, end: 20250405
  45. PRUCALOPRIDE SUCCINATE [Concomitant]
     Active Substance: PRUCALOPRIDE SUCCINATE
     Indication: Constipation
     Route: 048
     Dates: start: 20250401, end: 20250407
  46. Dulcolax-s [Concomitant]
     Indication: Constipation
     Route: 048
     Dates: start: 20250404, end: 20250404
  47. TAZOPERAN [Concomitant]
     Indication: Infection prophylaxis
     Dosage: TIME INTERVAL: 0.33333333 DAYS
     Route: 042
     Dates: start: 20250313, end: 20250319
  48. MEPERIDINE HYDROCHLORIDE [Concomitant]
     Active Substance: MEPERIDINE HYDROCHLORIDE
     Indication: Premedication
     Route: 030
     Dates: start: 20241230, end: 20241230

REACTIONS (5)
  - Hypophagia [Recovered/Resolved]
  - Neutropenia [Recovered/Resolved]
  - Hypophagia [Recovered/Resolved]
  - Acute myeloid leukaemia [Not Recovered/Not Resolved]
  - Abdominal pain [Recovered/Resolved]

NARRATIVE: CASE EVENT DATE: 20250118
